FAERS Safety Report 6983056-1 (Version None)
Quarter: 2010Q3

REPORT INFORMATION
  Report Type: 
  Country: None (occurrence: None)
  Receive Date: 20100914
  Receipt Date: 20100616
  Transmission Date: 20110219
  Serious: No
  Sender: FDA-Public Use
  Company Number: US-PFIZER INC-2010076583

PATIENT
  Sex: Male
  Weight: 127 kg

DRUGS (16)
  1. LYRICA [Suspect]
     Indication: NEUROPATHY PERIPHERAL
     Dosage: 75 MG, 2X/DAY
     Route: 048
     Dates: start: 20100501
  2. WARFARIN SODIUM [Concomitant]
     Indication: THROMBOSIS
     Dosage: 5 MG AND 7.5 MG ON ALTERNATE DAYS
     Route: 048
  3. NEXIUM [Concomitant]
     Indication: GASTROOESOPHAGEAL REFLUX DISEASE
     Dosage: 40 MG DAILY
     Route: 048
  4. ADVAIR DISKUS 100/50 [Concomitant]
     Indication: ASTHMA
     Dosage: 500/50 MG
     Route: 055
  5. ALTACE [Concomitant]
     Indication: CARDIAC FAILURE
     Dosage: 5 MG, UNK
  6. AVODART [Concomitant]
     Dosage: 0.5 MG, DAILY
  7. CYMBALTA [Concomitant]
     Indication: NEUROPATHY PERIPHERAL
     Dosage: 90MG, DAILY
     Route: 048
  8. TAMSULOSIN HYDROCHLORIDE [Concomitant]
     Indication: MICTURITION DISORDER
     Dosage: 0.4 MG
     Route: 048
  9. LIPITOR [Concomitant]
     Indication: CARDIAC DISORDER
     Dosage: 10 MG, DAILY
     Route: 048
  10. METFORMIN HYDROCHLORIDE [Concomitant]
     Indication: DIABETES MELLITUS
     Dosage: 1000 MG, 2X/DAY
     Route: 048
  11. LANTUS [Concomitant]
     Indication: DIABETES MELLITUS
     Dosage: 25 IU, DAILY
     Route: 030
  12. PROVIGIL [Concomitant]
     Indication: APNOEA
     Dosage: 200 MG, DAILY
  13. TOPROL-XL [Concomitant]
     Indication: CARDIAC DISORDER
     Dosage: 50 MG, DAILY
  14. VERAPAMIL [Concomitant]
     Indication: CARDIAC DISORDER
     Dosage: 160MG, 80MG, 80MG THREE TIMES A DAY
  15. PREDNISONE [Concomitant]
     Indication: VASCULITIS
     Dosage: 5 MG, DAILY
  16. NOVOLOG [Concomitant]
     Indication: DIABETES MELLITUS
     Dosage: 10 IU, 3X/DAY
     Route: 030

REACTIONS (2)
  - ABDOMINAL DISTENSION [None]
  - COLD SWEAT [None]
